FAERS Safety Report 21383638 (Version 1)
Quarter: 2022Q3

REPORT INFORMATION
  Report Type: Spontaneous
  Country: FR (occurrence: FR)
  Receive Date: 20220928
  Receipt Date: 20220928
  Transmission Date: 20221026
  Serious: Yes (Other)
  Sender: FDA-Public Use
  Company Number: None

PATIENT
  Age: 74 Year
  Sex: Male
  Weight: 74 kg

DRUGS (1)
  1. KEVZARA [Suspect]
     Active Substance: SARILUMAB
     Indication: Cogan^s syndrome
     Dosage: 200 MG, QOW
     Route: 058
     Dates: start: 20211001

REACTIONS (2)
  - Disease recurrence [Not Recovered/Not Resolved]
  - Nephrolithiasis [Not Recovered/Not Resolved]
